FAERS Safety Report 4927054-8 (Version None)
Quarter: 2006Q1

REPORT INFORMATION
  Report Type: 
  Country: None (occurrence: None)
  Receive Date: 20060228
  Receipt Date: 20051013
  Transmission Date: 20060701
  Serious: Yes (Other)
  Sender: FDA-Public Use
  Company Number: US-GLAXOSMITHKLINE-A0578150A

PATIENT
  Age: 24 Year
  Sex: Female
  Weight: 84.1 kg

DRUGS (2)
  1. LAMICTAL [Suspect]
     Indication: BIPOLAR DISORDER
     Dosage: 25MG PER DAY
     Route: 048
     Dates: start: 20050914, end: 20050926
  2. LEXAPRO [Concomitant]
     Dosage: 10MG PER DAY

REACTIONS (1)
  - RASH PRURITIC [None]
